FAERS Safety Report 23783732 (Version 2)
Quarter: 2024Q2

REPORT INFORMATION
  Report Type: Report from Study
  Country: US (occurrence: US)
  Receive Date: 20240425
  Receipt Date: 20240503
  Transmission Date: 20240716
  Serious: No
  Sender: FDA-Public Use
  Company Number: US-BIOVITRUM-2024-US-006263

PATIENT
  Age: 27 Year
  Sex: Female

DRUGS (1)
  1. DOPTELET [Suspect]
     Active Substance: AVATROMBOPAG MALEATE
     Indication: Immune thrombocytopenia
     Dosage: 20 MG ONCE DAILY
     Route: 048
     Dates: start: 20240405

REACTIONS (4)
  - Headache [Unknown]
  - Off label use [Not Recovered/Not Resolved]
  - Platelet count abnormal [Unknown]
  - Platelet count decreased [Unknown]
